FAERS Safety Report 6349614-2 (Version None)
Quarter: 2009Q3

REPORT INFORMATION
  Report Type: 
  Country: None (occurrence: None)
  Receive Date: 20090911
  Receipt Date: 20090831
  Transmission Date: 20100115
  Serious: Yes (Hospitalization)
  Sender: FDA-Public Use
  Company Number: US-WYE-H10427909

PATIENT
  Sex: Male
  Weight: 76.27 kg

DRUGS (2)
  1. PRISTIQ [Suspect]
     Indication: MAJOR DEPRESSION
     Route: 048
     Dates: start: 20090602, end: 20090724
  2. TYLENOL [Concomitant]
     Indication: INSOMNIA
     Dosage: UNKNOWN

REACTIONS (9)
  - ABNORMAL BEHAVIOUR [None]
  - AGGRESSION [None]
  - AGITATION [None]
  - AMNESIA [None]
  - CONFUSIONAL STATE [None]
  - DEHYDRATION [None]
  - DRUG SCREEN FALSE POSITIVE [None]
  - MENTAL STATUS CHANGES [None]
  - RESTLESSNESS [None]
